FAERS Safety Report 16346863 (Version 1)
Quarter: 2019Q2

REPORT INFORMATION
  Report Type: Spontaneous
  Country: US (occurrence: US)
  Receive Date: 20190417
  Receipt Date: 20190417
  Transmission Date: 20190711
  Serious: No
  Sender: FDA-Public Use
  Company Number: None

PATIENT
  Age: 69 Year
  Sex: Female

DRUGS (1)
  1. DALFAMPRIDINE 10MG ER TABS [Suspect]
     Active Substance: DALFAMPRIDINE
     Route: 048
     Dates: start: 20190407

REACTIONS (3)
  - Vomiting [None]
  - Feeling hot [None]
  - Muscle tightness [None]

NARRATIVE: CASE EVENT DATE: 20190409
